FAERS Safety Report 4896537-1 (Version None)
Quarter: 2006Q1

REPORT INFORMATION
  Report Type: 
  Country: None (occurrence: None)
  Receive Date: 20060131
  Receipt Date: 20060124
  Transmission Date: 20060701
  Serious: Yes (Other)
  Sender: FDA-Public Use
  Company Number: RU-GLAXOSMITHKLINE-B0408233A

PATIENT
  Age: 20 Year
  Sex: Female

DRUGS (1)
  1. FLIXONASE [Suspect]
     Indication: RHINITIS PERENNIAL
     Route: 045
     Dates: start: 20030101

REACTIONS (2)
  - EPISTAXIS [None]
  - NASAL MUCOSA ATROPHY [None]
